FAERS Safety Report 5098736-5 (Version None)
Quarter: 2006Q3

REPORT INFORMATION
  Report Type: 
  Country: None (occurrence: None)
  Receive Date: 20060907
  Receipt Date: 20060505
  Transmission Date: 20061208
  Serious: Yes (Congenital Anomaly)
  Sender: FDA-Public Use
  Company Number: US-GLAXOSMITHKLINE-A0605123A

PATIENT
  Weight: 0.5 kg

DRUGS (1)
  1. TRIZIVIR [Suspect]
     Indication: HIV INFECTION
     Dosage: 2TAB PER DAY
     Dates: start: 20060126, end: 20060427

REACTIONS (3)
  - CONGENITAL BOWING OF LONG BONES [None]
  - DRUG EXPOSURE DURING PREGNANCY [None]
  - SKELETON DYSPLASIA [None]
